FAERS Safety Report 7657705-9 (Version None)
Quarter: 2011Q3

REPORT INFORMATION
  Report Type: 
  Country: None (occurrence: None)
  Receive Date: 20110804
  Receipt Date: 20110727
  Transmission Date: 20111222
  Serious: Yes (Other)
  Sender: FDA-Public Use
  Company Number: US-RB-019405-10

PATIENT
  Age: 29 Year
  Sex: Female

DRUGS (1)
  1. SUBOXONE [Suspect]
     Indication: PRODUCT USED FOR UNKNOWN INDICATION
     Dosage: SUBLINGUAL FILM / DOSING INFORMATION UNKNOWN
     Route: 065

REACTIONS (13)
  - THERMAL BURN [None]
  - DRUG DEPENDENCE [None]
  - HALLUCINATION [None]
  - MYALGIA [None]
  - SOMNAMBULISM [None]
  - SWELLING [None]
  - MIDDLE INSOMNIA [None]
  - INSOMNIA [None]
  - ABNORMAL DREAMS [None]
  - IRRITABILITY [None]
  - ANXIETY [None]
  - FATIGUE [None]
  - MOOD ALTERED [None]
